FAERS Safety Report 17885266 (Version 1)
Quarter: 2020Q2

REPORT INFORMATION
  Report Type: Spontaneous
  Country: US (occurrence: US)
  Receive Date: 20200611
  Receipt Date: 20200611
  Transmission Date: 20200714
  Serious: Yes (Other)
  Sender: FDA-Public Use
  Company Number: US-FARMAPROD-202006-0764

PATIENT
  Age: 69 Year
  Sex: Male

DRUGS (16)
  1. ALEVE [Concomitant]
     Active Substance: NAPROXEN SODIUM
  2. DOXYCYCLINE HYCLATE. [Concomitant]
     Active Substance: DOXYCYCLINE HYCLATE
  3. REFRESH OPTIVE MEGA-3 [Concomitant]
     Active Substance: CARBOXYMETHYLCELLULOSE SODIUM\GLYCERIN\POLYSORBATE 80
  4. CENTRUM SILVER MEN [Concomitant]
  5. LATANOPROST. [Concomitant]
     Active Substance: LATANOPROST
  6. PRILOSEC OTC [Concomitant]
     Active Substance: OMEPRAZOLE MAGNESIUM
  7. VITAMINE C [Concomitant]
     Active Substance: ASCORBIC ACID
  8. ROPINIROLE HCL [Concomitant]
     Active Substance: ROPINIROLE HYDROCHLORIDE
  9. MELATONIN [Concomitant]
     Active Substance: MELATONIN
  10. FISH OIL [Concomitant]
     Active Substance: FISH OIL
  11. TYLENOL 8HR [Concomitant]
     Active Substance: ACETAMINOPHEN
  12. PREDNISOLONE-NEPAFENAC [Concomitant]
  13. SERTRALINE HCL [Concomitant]
     Active Substance: SERTRALINE HYDROCHLORIDE
  14. OXERVATE [Suspect]
     Active Substance: CENEGERMIN-BKBJ
     Indication: NEUROTROPHIC KERATOPATHY
     Route: 047
     Dates: start: 20200414
  15. DOCUSATE SODIUM. [Concomitant]
     Active Substance: DOCUSATE SODIUM
  16. MOXIFLOXACIN. [Concomitant]
     Active Substance: MOXIFLOXACIN

REACTIONS (2)
  - Surgery [Unknown]
  - Product dose omission [Unknown]

NARRATIVE: CASE EVENT DATE: 202005
